APPROVED DRUG PRODUCT: QBRELIS
Active Ingredient: LISINOPRIL
Strength: 1MG/ML
Dosage Form/Route: SOLUTION;ORAL
Application: N208401 | Product #001
Applicant: AZURITY PHARMACEUTICALS INC
Approved: Jul 29, 2016 | RLD: Yes | RS: Yes | Type: RX

PATENTS:
Patent 9616096 | Expires: Nov 6, 2035
Patent 10039800 | Expires: Nov 6, 2035
Patent 10039800 | Expires: Nov 6, 2035
Patent 10039800 | Expires: Nov 6, 2035
Patent 10039800 | Expires: Nov 6, 2035
Patent 10039800 | Expires: Nov 6, 2035
Patent 9616096 | Expires: Nov 6, 2035
Patent 10406199 | Expires: Nov 6, 2035
Patent 10406199 | Expires: Nov 6, 2035
Patent 10406199 | Expires: Nov 6, 2035
Patent 10406199 | Expires: Nov 6, 2035
Patent 10406199 | Expires: Nov 6, 2035
Patent 10406199 | Expires: Nov 6, 2035
Patent 10406199 | Expires: Nov 6, 2035
Patent 9616096 | Expires: Nov 6, 2035
Patent 9616096 | Expires: Nov 6, 2035
Patent 10039800 | Expires: Nov 6, 2035
Patent 12433931 | Expires: Nov 6, 2035
Patent 12433931 | Expires: Nov 6, 2035
Patent 12433931 | Expires: Nov 6, 2035
Patent 10039800 | Expires: Nov 6, 2035
Patent 9616096 | Expires: Nov 6, 2035
Patent 9616096 | Expires: Nov 6, 2035
Patent 9616096 | Expires: Nov 6, 2035
Patent 10265370 | Expires: Nov 6, 2035
Patent 9463183 | Expires: Nov 6, 2035
Patent 11179434 | Expires: Nov 6, 2035
Patent 9814751 | Expires: Nov 6, 2035
Patent 10940177 | Expires: Nov 6, 2035
Patent 11771733 | Expires: Nov 6, 2035
Patent 12186360 | Expires: Nov 6, 2035
Patent 12128083 | Expires: Nov 6, 2035